FAERS Safety Report 19596869 (Version 1)
Quarter: 2021Q3

REPORT INFORMATION
  Report Type: Spontaneous
  Country: TR (occurrence: TR)
  Receive Date: 20210722
  Receipt Date: 20210722
  Transmission Date: 20211014
  Serious: Yes (Other)
  Sender: FDA-Public Use
  Company Number: TR-ELI_LILLY_AND_COMPANY-TR202107004688

PATIENT
  Age: 31 Year
  Sex: Male

DRUGS (2)
  1. CORONAVAC [Concomitant]
     Active Substance: INVESTIGATIONAL PRODUCT
     Dosage: UNK, UNKNOWN
  2. COPELLOR 80MG [Suspect]
     Active Substance: IXEKIZUMAB
     Indication: PRODUCT USED FOR UNKNOWN INDICATION
     Dosage: UNK, UNKNOWN
     Route: 065
     Dates: start: 202011

REACTIONS (3)
  - Peripheral swelling [Recovered/Resolved]
  - Injection site erythema [Unknown]
  - Injection site swelling [Not Recovered/Not Resolved]

NARRATIVE: CASE EVENT DATE: 20210710
